FAERS Safety Report 5403812-0 (Version None)
Quarter: 2007Q3

REPORT INFORMATION
  Report Type: 
  Country: None (occurrence: None)
  Receive Date: 20070731
  Receipt Date: 20070731
  Transmission Date: 20080115
  Serious: Yes (Death)
  Sender: FDA-Public Use
  Company Number: None

PATIENT
  Age: 66 Year
  Sex: Female
  Weight: 54.8852 kg

DRUGS (1)
  1. LEVAQUIN [Suspect]
     Indication: PNEUMONIA
     Dosage: 500 MG 1 TIME PER DAY PO
     Route: 048
     Dates: start: 20061230, end: 20070108

REACTIONS (5)
  - DRUG ADMINISTRATION ERROR [None]
  - DYSPNOEA [None]
  - HEART RATE INCREASED [None]
  - HEART RATE IRREGULAR [None]
  - TREMOR [None]
